FAERS Safety Report 5839586-9 (Version None)
Quarter: 2008Q3

REPORT INFORMATION
  Report Type: 
  Country: None (occurrence: None)
  Receive Date: 20080811
  Receipt Date: 20080710
  Transmission Date: 20090109
  Serious: No
  Sender: FDA-Public Use
  Company Number: A0735822A

PATIENT
  Age: 53 Year
  Sex: Female
  Weight: 56.8 kg

DRUGS (3)
  1. TREXIMET [Suspect]
     Indication: MIGRAINE
     Dosage: 85MG AS REQUIRED
     Route: 048
     Dates: start: 20080601, end: 20080601
  2. XYZAL [Concomitant]
     Indication: MULTIPLE ALLERGIES
     Dosage: 5MG AT NIGHT
     Route: 048
  3. OSCAL D [Concomitant]

REACTIONS (1)
  - GASTROOESOPHAGEAL REFLUX DISEASE [None]
